FAERS Safety Report 7609350-9 (Version None)
Quarter: 2011Q3

REPORT INFORMATION
  Report Type: 
  Country: None (occurrence: None)
  Receive Date: 20110714
  Receipt Date: 20110706
  Transmission Date: 20111222
  Serious: Yes (Other)
  Sender: FDA-Public Use
  Company Number: PHHY2011US60521

PATIENT
  Age: 44 Year
  Sex: Female
  Weight: 56 kg

DRUGS (5)
  1. PROVIGIL [Concomitant]
     Indication: FATIGUE
     Dosage: 100 MG, DAILY
     Route: 048
     Dates: start: 20100329
  2. COPAXONE [Concomitant]
     Dosage: 20 MG, QOD
     Route: 058
     Dates: start: 20100330
  3. FROVA [Concomitant]
     Indication: HEADACHE
     Dosage: 22.5 MG, PRN
     Dates: start: 20090107
  4. GILENYA [Suspect]
     Dosage: UNK UKN, UNK
  5. TOPAMAX [Concomitant]
     Indication: HEADACHE
     Dosage: 100 MG, DAILY
     Route: 048
     Dates: start: 20081201

REACTIONS (3)
  - OPTIC NEURITIS [None]
  - VISION BLURRED [None]
  - EYE PAIN [None]
